FAERS Safety Report 10464354 (Version 1)
Quarter: 2014Q3

REPORT INFORMATION
  Report Type: Spontaneous
  Country: US (occurrence: US)
  Receive Date: 20140919
  Receipt Date: 20140919
  Transmission Date: 20150326
  Serious: Yes (Hospitalization)
  Sender: FDA-Public Use
  Company Number: US-BAYER-2014-133676

PATIENT
  Age: 79 Year
  Sex: Female
  Weight: 64.4 kg

DRUGS (4)
  1. NIASPAN [Concomitant]
     Active Substance: NIACIN
  2. PAIN STOPPER EXTRA [Suspect]
     Active Substance: ACETAMINOPHEN\ASPIRIN\CAFFEINE\SALICYLAMIDE
     Indication: ANALGESIC THERAPY
     Dosage: UNK, PRN
  3. PAIN STOPPER EXTRA [Suspect]
     Active Substance: ACETAMINOPHEN\ASPIRIN\CAFFEINE\SALICYLAMIDE
     Indication: ANALGESIC THERAPY
     Dosage: 2 DF, QD
     Route: 048
  4. PAIN STOPPER EXTRA [Suspect]
     Active Substance: ACETAMINOPHEN\ASPIRIN\CAFFEINE\SALICYLAMIDE
     Indication: ANALGESIC THERAPY
     Dosage: UNK, PRN
     Route: 048
     Dates: start: 2011, end: 201309

REACTIONS (1)
  - Gastric ulcer haemorrhage [Recovered/Resolved]

NARRATIVE: CASE EVENT DATE: 201309
